FAERS Safety Report 6117104-8 (Version None)
Quarter: 2009Q1

REPORT INFORMATION
  Report Type: 
  Country: None (occurrence: None)
  Receive Date: 20090314
  Receipt Date: 20090127
  Transmission Date: 20090719
  Serious: No
  Sender: FDA-Public Use
  Company Number: US-ABBOTT-09P-163-0496303-00

PATIENT
  Sex: Male

DRUGS (5)
  1. HUMIRA [Suspect]
     Indication: CROHN'S DISEASE
     Dosage: 160MG LOADING DOSE DAY 1
     Route: 058
     Dates: start: 20090106, end: 20090106
  2. HUMIRA [Suspect]
     Route: 058
     Dates: start: 20090120
  3. HUMIRA [Suspect]
  4. PREDNISONE [Suspect]
     Indication: CROHN'S DISEASE
     Route: 048
     Dates: start: 20081201
  5. PREDNISONE [Suspect]
     Indication: IRRITABLE BOWEL SYNDROME

REACTIONS (11)
  - ASTHENIA [None]
  - DIARRHOEA [None]
  - FATIGUE [None]
  - FREQUENT BOWEL MOVEMENTS [None]
  - INITIAL INSOMNIA [None]
  - INJECTION SITE HAEMATOMA [None]
  - INSOMNIA [None]
  - MIDDLE INSOMNIA [None]
  - READING DISORDER [None]
  - SLEEP DISORDER [None]
  - VISION BLURRED [None]
